FAERS Safety Report 18114040 (Version 2)
Quarter: 2021Q2

REPORT INFORMATION
  Report Type: Spontaneous
  Country: None (occurrence: US)
  Receive Date: 20200805
  Receipt Date: 20210629
  Transmission Date: 20210717
  Serious: Yes (Other)
  Sender: FDA-Public Use
  Company Number: US-GLAXOSMITHKLINE-US2020150757

PATIENT
  Sex: Male

DRUGS (5)
  1. ZANTAC [Suspect]
     Active Substance: RANITIDINE HYDROCHLORIDE
     Indication: ALLERGIC SINUSITIS
     Dosage: 75 MG, WE
     Route: 065
     Dates: start: 198906, end: 201808
  2. ZANTAC [Suspect]
     Active Substance: RANITIDINE HYDROCHLORIDE
     Indication: ALLERGIC SINUSITIS
     Dosage: 75 MG, WE
     Route: 065
     Dates: start: 198906, end: 201808
  3. RANITIDINE CAPSULE [Suspect]
     Active Substance: RANITIDINE
     Indication: ALLERGIC SINUSITIS
     Dosage: 75 MG, WE
     Route: 065
     Dates: start: 198906, end: 201808
  4. ZANTAC [Suspect]
     Active Substance: RANITIDINE HYDROCHLORIDE
  5. ZANTAC [Suspect]
     Active Substance: RANITIDINE HYDROCHLORIDE
     Indication: ALLERGIC SINUSITIS
     Dosage: 75 MG, WE
     Route: 065
     Dates: start: 198906, end: 201808

REACTIONS (1)
  - Prostate cancer [Unknown]
